FAERS Safety Report 14195103 (Version 1)
Quarter: 2017Q4

REPORT INFORMATION
  Report Type: Report from Study
  Country: CA (occurrence: CA)
  Receive Date: 20171116
  Receipt Date: 20171116
  Transmission Date: 20180321
  Serious: Yes (Hospitalization, Other)
  Sender: FDA-Public Use
  Company Number: CA-AMGEN-CANSL2017166353

PATIENT
  Age: 76 Year
  Sex: Female

DRUGS (1)
  1. PROLIA [Suspect]
     Active Substance: DENOSUMAB
     Indication: PRODUCT USED FOR UNKNOWN INDICATION
     Dosage: 60 MG/ML, UNK
     Route: 065
     Dates: start: 201609

REACTIONS (8)
  - Limb discomfort [Unknown]
  - Arthralgia [Not Recovered/Not Resolved]
  - Back pain [Not Recovered/Not Resolved]
  - Groin pain [Not Recovered/Not Resolved]
  - Weight decreased [Unknown]
  - Pain in extremity [Not Recovered/Not Resolved]
  - Clostridium difficile infection [Unknown]
  - Pneumonia [Unknown]

NARRATIVE: CASE EVENT DATE: 2016
